FAERS Safety Report 8963318 (Version 4)
Quarter: 2014Q1

REPORT INFORMATION
  Report Type: Report from Study
  Country: CA (occurrence: CA)
  Receive Date: 20121214
  Receipt Date: 20140226
  Transmission Date: 20141002
  Serious: Yes (Hospitalization, Other)
  Sender: FDA-Public Use
  Company Number: CA-ROCHE-1164206

PATIENT
  Age: 59 Year
  Sex: Female
  Weight: 72 kg

DRUGS (14)
  1. RITUXAN [Suspect]
     Indication: GRANULOMATOSIS WITH POLYANGIITIS
     Route: 042
     Dates: start: 20121128
  2. PREDNISONE [Concomitant]
  3. PANTOLOC [Concomitant]
  4. EZETROL [Concomitant]
  5. WARFARIN [Concomitant]
     Route: 065
     Dates: end: 201310
  6. DDAVP [Concomitant]
     Route: 045
     Dates: end: 201311
  7. ARANESP [Concomitant]
     Route: 058
  8. DIPHENHYDRAMINE HCL [Concomitant]
     Indication: PREMEDICATION
     Route: 048
     Dates: start: 20121128
  9. ACETAMINOPHEN [Concomitant]
     Indication: PREMEDICATION
     Route: 048
     Dates: start: 20121128
  10. METHYLPREDNISOLONE [Concomitant]
     Indication: PREMEDICATION
     Route: 042
     Dates: start: 20121128
  11. AMLODIPINE [Concomitant]
  12. ISOPROPANOL [Concomitant]
     Route: 065
     Dates: start: 201311
  13. RAMIPRIL [Concomitant]
     Route: 065
     Dates: start: 201308
  14. CRESTOR [Concomitant]

REACTIONS (6)
  - Malaise [Not Recovered/Not Resolved]
  - Abdominal pain upper [Not Recovered/Not Resolved]
  - Decreased appetite [Not Recovered/Not Resolved]
  - Blood sodium decreased [Unknown]
  - Blood creatinine increased [Unknown]
  - Vasculitis [Unknown]
